FAERS Safety Report 24293130 (Version 1)
Quarter: 2024Q3

REPORT INFORMATION
  Report Type: Spontaneous
  Country: US (occurrence: None)
  Receive Date: 20240906
  Receipt Date: 20240906
  Transmission Date: 20241017
  Serious: No
  Sender: DOMPE FARMACEUTICI
  Company Number: US-FARMAPROD-202311-3455

PATIENT
  Age: 66 Year
  Sex: Male
  Weight: 124.74 kg

DRUGS (27)
  1. OXERVATE [Suspect]
     Active Substance: CENEGERMIN-BKBJ
     Indication: Neurotrophic keratopathy
     Route: 047
     Dates: start: 20231111
  2. TIMOLOL MALEATE [Concomitant]
     Active Substance: TIMOLOL MALEATE
  3. ASPIRIN [Concomitant]
     Active Substance: ASPIRIN
  4. SILDENAFIL CITRATE [Concomitant]
     Active Substance: SILDENAFIL CITRATE
  5. ACETAMINOPHEN [Concomitant]
     Active Substance: ACETAMINOPHEN
  6. VYZULTA [Concomitant]
     Active Substance: LATANOPROSTENE BUNOD
  7. OPSUMIT [Concomitant]
     Active Substance: MACITENTAN
  8. ELIQUIS [Concomitant]
     Active Substance: APIXABAN
  9. LISINOPRIL [Concomitant]
     Active Substance: LISINOPRIL
  10. WIXELA INHUB [Concomitant]
     Active Substance: FLUTICASONE PROPIONATE\SALMETEROL XINAFOATE
     Dosage: 100-50 MCG BLISTER WITH DEVICE
     Route: 055
  11. FUROSEMIDE [Concomitant]
     Active Substance: FUROSEMIDE
  12. METFORMIN HYDROCHLORIDE [Concomitant]
     Active Substance: METFORMIN HYDROCHLORIDE
  13. ADEMPAS [Concomitant]
     Active Substance: RIOCIGUAT
  14. ASPIRIN [Concomitant]
     Active Substance: ASPIRIN
  15. TACROLIMUS [Concomitant]
     Active Substance: TACROLIMUS
  16. METFORMIN [Concomitant]
     Active Substance: METFORMIN HYDROCHLORIDE
     Dosage: EXTENDED-RELEASE OSMOTIC
  17. LISINOPRIL [Concomitant]
     Active Substance: LISINOPRIL
  18. DOXYCYCLINE HYCLATE [Concomitant]
     Active Substance: DOXYCYCLINE HYCLATE
  19. TEMOVATE [Concomitant]
     Active Substance: CLOBETASOL PROPIONATE
  20. CLEOCIN T [Concomitant]
     Active Substance: CLINDAMYCIN PHOSPHATE
     Dosage: LOTION
  21. ACYCLOVIR [Concomitant]
     Active Substance: ACYCLOVIR
  22. GLIPIZIDE [Concomitant]
     Active Substance: GLIPIZIDE
  23. SYMBICORT [Concomitant]
     Active Substance: BUDESONIDE\FORMOTEROL FUMARATE DIHYDRATE
     Dosage: 160-4.5MCG HFA AEROSOL WITH ADAPTER
  24. METOPROLOL SUCCINATE [Concomitant]
     Active Substance: METOPROLOL SUCCINATE
  25. DORZOLAMIDE\TIMOLOL [Concomitant]
     Active Substance: DORZOLAMIDE\TIMOLOL
  26. FAMOTIDINE [Concomitant]
     Active Substance: FAMOTIDINE
  27. C-PAP [Concomitant]

REACTIONS (1)
  - Wrong technique in product usage process [Unknown]

NARRATIVE: CASE EVENT DATE: 20231111
